FAERS Safety Report 6434767-8 (Version None)
Quarter: 2009Q4

REPORT INFORMATION
  Report Type: 
  Country: None (occurrence: None)
  Receive Date: 20091110
  Receipt Date: 20091029
  Transmission Date: 20100525
  Serious: Yes (Other)
  Sender: FDA-Public Use
  Company Number: GB-PFIZER INC-2009291121

PATIENT
  Sex: Male

DRUGS (1)
  1. SALAZOPYRIN [Suspect]
     Dosage: 1 G, 2X/DAY
     Route: 048

REACTIONS (3)
  - DYSPHAGIA [None]
  - OESOPHAGITIS [None]
  - OROPHARYNGEAL PAIN [None]
